FAERS Safety Report 26186452 (Version 1)
Quarter: 2025Q4

REPORT INFORMATION
  Report Type: Spontaneous
  Country: US (occurrence: None)
  Receive Date: 20251219
  Receipt Date: 20251219
  Transmission Date: 20260118
  Serious: Yes (Hospitalization)
  Sender: FDA-CTU
  Company Number: None

PATIENT
  Age: 76 Year
  Sex: Male
  Weight: 68 kg

DRUGS (1)
  1. SULFAMETHOXAZOLE\TRIMETHOPRIM [Suspect]
     Active Substance: SULFAMETHOXAZOLE\TRIMETHOPRIM
     Indication: Prophylaxis
     Dosage: 1 TABLET BID PO
     Route: 048
     Dates: start: 20250924, end: 20250929

REACTIONS (4)
  - Hyperkalaemia [None]
  - Acute kidney injury [None]
  - Cholelithiasis [None]
  - Cholecystitis acute [None]

NARRATIVE: CASE EVENT DATE: 20250929
